FAERS Safety Report 14827300 (Version 4)
Quarter: 2019Q3

REPORT INFORMATION
  Report Type: Spontaneous
  Country: RU (occurrence: RU)
  Receive Date: 20180430
  Receipt Date: 20190822
  Transmission Date: 20191004
  Serious: Yes (Death, Other)
  Sender: FDA-Public Use
  Company Number: RU-ROCHE-2115278

PATIENT
  Age: 67 Year
  Sex: Male

DRUGS (12)
  1. LASIX [Concomitant]
     Active Substance: FUROSEMIDE
  2. VOLUVEN [HETASTARCH;SODIUM CHLORIDE] [Concomitant]
  3. CHOLINE ALFOSCERATE [Concomitant]
     Active Substance: CHOLINE ALFOSCERATE
     Indication: ISCHAEMIC STROKE
  4. MEXIDOL [Concomitant]
     Active Substance: EMOXYPINE SUCCINATE
  5. EBRANTIL [URAPIDIL] [Concomitant]
     Active Substance: URAPIDIL
  6. CORTICOTROPIN [Concomitant]
     Active Substance: CORTICOTROPIN
  7. ATORVASTATIN [Concomitant]
     Active Substance: ATORVASTATIN
  8. PRESTARIUM [PERINDOPRIL] [Concomitant]
  9. DOFAMIN [Concomitant]
  10. ACTILYSE [Suspect]
     Active Substance: ALTEPLASE
     Indication: ISCHAEMIC STROKE
     Route: 042
     Dates: start: 20180404, end: 20180404
  11. AMLODIPINE [Concomitant]
     Active Substance: AMLODIPINE BESYLATE
  12. OMEZ [OMEPRAZOLE] [Concomitant]
     Active Substance: OMEPRAZOLE

REACTIONS (4)
  - Blood urine present [Unknown]
  - Brain oedema [Fatal]
  - Blood pressure increased [Unknown]
  - Cardiac arrest [Fatal]

NARRATIVE: CASE EVENT DATE: 20180404
